FAERS Safety Report 7209070-9 (Version None)
Quarter: 2010Q4

REPORT INFORMATION
  Report Type: 
  Country: None (occurrence: None)
  Receive Date: 20101222
  Receipt Date: 20101210
  Transmission Date: 20110411
  Serious: Yes (Disabling)
  Sender: FDA-Public Use
  Company Number: 2010MA005250

PATIENT
  Age: 63 Year
  Sex: Male

DRUGS (1)
  1. AMLODIPINE BESYLATE [Suspect]
     Indication: HYPERTENSION
     Dosage: 10 MG;
     Dates: start: 20080822, end: 20101030

REACTIONS (1)
  - FEELING COLD [None]
